FAERS Safety Report 8895448 (Version 1)
Quarter: 2012Q4

REPORT INFORMATION
  Report Type: 
  Country: US (occurrence: US)
  Receive Date: 20121108
  Receipt Date: 20121108
  Transmission Date: 20130627
  Serious: No
  Sender: FDA-Public Use
  Company Number: US-ASTRAZENECA-2012SE82026

PATIENT
  Age: 51 Year
  Sex: Male

DRUGS (2)
  1. LISINOPRIL [Suspect]
     Route: 048
  2. BENICAR [Suspect]
     Route: 065

REACTIONS (3)
  - Blood pressure fluctuation [Unknown]
  - Alopecia [Unknown]
  - Abdominal discomfort [Unknown]
